FAERS Safety Report 14182283 (Version 1)
Quarter: 2017Q4

REPORT INFORMATION
  Report Type: Spontaneous
  Country: US (occurrence: US)
  Receive Date: 20171113
  Receipt Date: 20171113
  Transmission Date: 20180321
  Serious: Yes (Death, Other)
  Sender: FDA-Public Use
  Company Number: PHEH2017US036388

PATIENT
  Sex: Female

DRUGS (3)
  1. FLUOXETINE [Suspect]
     Active Substance: FLUOXETINE HYDROCHLORIDE
     Indication: PRODUCT USED FOR UNKNOWN INDICATION
     Route: 065
  2. REMODULIN [Suspect]
     Active Substance: TREPROSTINIL
     Indication: PULMONARY ARTERIAL HYPERTENSION
     Dosage: 0.080 UG/KG, UNK
     Route: 058
     Dates: start: 20150407
  3. ADEMPAS [Suspect]
     Active Substance: RIOCIGUAT
     Indication: PRODUCT USED FOR UNKNOWN INDICATION
     Dosage: 1.5 MG, TID
     Route: 048

REACTIONS (16)
  - Ascites [Unknown]
  - Hiccups [Not Recovered/Not Resolved]
  - Blood pressure decreased [Unknown]
  - Skin discolouration [Unknown]
  - Livedo reticularis [Unknown]
  - Pulmonary arterial hypertension [Fatal]
  - Flushing [Not Recovered/Not Resolved]
  - Nausea [Unknown]
  - Dyspnoea exertional [Unknown]
  - Dyspnoea [Unknown]
  - Decreased appetite [Unknown]
  - Disease progression [Fatal]
  - General physical health deterioration [Unknown]
  - Diarrhoea [Unknown]
  - Headache [Unknown]
  - Dizziness [Unknown]

NARRATIVE: CASE EVENT DATE: 20170718
